FAERS Safety Report 7224114-6 (Version None)
Quarter: 2011Q1

REPORT INFORMATION
  Report Type: 
  Country: None (occurrence: None)
  Receive Date: 20110106
  Receipt Date: 20110106
  Transmission Date: 20110831
  Serious: Yes (Hospitalization)
  Sender: FDA-Public Use
  Company Number: None

PATIENT
  Age: 54 Year
  Sex: Male

DRUGS (5)
  1. TUSSIONEX [Suspect]
     Indication: BRONCHITIS
     Dosage: 5ML Q12H PRN PO  RECENT
     Route: 048
  2. PREDNISONE [Concomitant]
  3. ALBUTEROL [Concomitant]
  4. NYSTATIN [Concomitant]
  5. LEVAQUIN [Concomitant]

REACTIONS (2)
  - ANGIOEDEMA [None]
  - DYSPHAGIA [None]
